FAERS Safety Report 4289940-4 (Version None)
Quarter: 2004Q1

REPORT INFORMATION
  Report Type: 
  Country: None (occurrence: None)
  Receive Date: 20040209
  Receipt Date: 20030124
  Transmission Date: 20041129
  Serious: Yes (Hospitalization)
  Sender: FDA-Public Use
  Company Number: 189406

PATIENT
  Age: 52 Year
  Sex: Male

DRUGS (2)
  1. AVONEX [Suspect]
     Indication: MULTIPLE SCLEROSIS
     Dosage: 30 MCG QW IM
     Dates: start: 19980401
  2. LEVSIN [Concomitant]

REACTIONS (3)
  - CONDITION AGGRAVATED [None]
  - DECUBITUS ULCER [None]
  - MULTIPLE SCLEROSIS [None]
